FAERS Safety Report 13937874 (Version 3)
Quarter: 2017Q4

REPORT INFORMATION
  Report Type: Spontaneous
  Country: US (occurrence: US)
  Receive Date: 20170905
  Receipt Date: 20171017
  Transmission Date: 20180320
  Serious: Yes (Other)
  Sender: FDA-Public Use
  Company Number: US-AKORN PHARMACEUTICALS-2017AKN01056

PATIENT
  Age: 28 Year
  Sex: Female

DRUGS (3)
  1. MYORISAN [Suspect]
     Active Substance: ISOTRETINOIN
     Dosage: 20 MG, 3X/DAY
     Dates: start: 20161111, end: 201706
  2. ORTHO TRI CYCLEN [Concomitant]
     Active Substance: ETHINYL ESTRADIOL\NORGESTIMATE
  3. HYDROCODONE PILL [Concomitant]
     Dosage: UNK
     Dates: start: 20170730, end: 20170825

REACTIONS (5)
  - Inappropriate schedule of drug administration [Recovered/Resolved]
  - Exposure during pregnancy [Recovered/Resolved]
  - Vaginal haemorrhage [Recovered/Resolved]
  - Ankle operation [Recovered/Resolved]
  - Abortion induced complete [Recovered/Resolved]

NARRATIVE: CASE EVENT DATE: 20161111
